FAERS Safety Report 5912338-7 (Version None)
Quarter: 2008Q4

REPORT INFORMATION
  Report Type: 
  Country: None (occurrence: None)
  Receive Date: 20081008
  Receipt Date: 20081001
  Transmission Date: 20090506
  Serious: Yes (Death, Life-Threatening)
  Sender: FDA-Public Use
  Company Number: FR-ELI_LILLY_AND_COMPANY-FR200810000615

PATIENT
  Age: 67 Year
  Sex: Male
  Weight: 67 kg

DRUGS (7)
  1. PEMETREXED [Suspect]
     Indication: NON-SMALL CELL LUNG CANCER
     Dosage: 500 MG/M2, UNK (880 MG) DAY ONE/22
     Route: 042
     Dates: start: 20070827
  2. FOLIC ACID [Concomitant]
     Indication: SUPPLEMENTATION THERAPY
  3. VITAMIN B-12 [Concomitant]
     Indication: SUPPLEMENTATION THERAPY
  4. CORTICOSTEROID NOS [Concomitant]
  5. URBANYL [Concomitant]
     Indication: EPILEPSY
     Dosage: 20 MG, DAILY (1/D)
     Route: 048
     Dates: start: 20070621
  6. TIAPRIDAL [Concomitant]
     Indication: EPILEPSY
     Dosage: 200 MG, DAILY (1/D)
     Route: 048
     Dates: start: 20070621
  7. NEXIUM [Concomitant]
     Indication: PROPHYLAXIS
     Dosage: 20 MG, DAILY (1/D)
     Route: 048
     Dates: start: 20070621

REACTIONS (2)
  - LUNG DISORDER [None]
  - RESPIRATORY DISTRESS [None]
